FAERS Safety Report 10537652 (Version 1)
Quarter: 2014Q4

REPORT INFORMATION
  Report Type: Spontaneous
  Country: US (occurrence: None)
  Receive Date: 20141022
  Receipt Date: 20141022
  Transmission Date: 20150529
  Serious: Yes (Hospitalization)
  Sender: FDA-Public Use
  Company Number: None

PATIENT
  Age: 65 Year
  Sex: Female
  Weight: 88.1 kg

DRUGS (19)
  1. LORAZEPAM. [Concomitant]
     Active Substance: LORAZEPAM
  2. ASPIRIN. [Concomitant]
     Active Substance: ASPIRIN
  3. LINAGLIPTIN [Concomitant]
     Active Substance: LINAGLIPTIN
  4. PALONOSETRON [Concomitant]
     Active Substance: PALONOSETRON
  5. DIPHENHYDRAMINE [Concomitant]
     Active Substance: DIPHENHYDRAMINE
  6. MULTIVITAMIN [Concomitant]
     Active Substance: VITAMINS
  7. METOPROLOL [Concomitant]
     Active Substance: METOPROLOL
  8. NEULASTA [Suspect]
     Active Substance: PEGFILGRASTIM
     Indication: NEUTROPENIA
     Route: 058
     Dates: start: 20140923, end: 20140923
  9. TRAZTUZUMAB [Concomitant]
  10. HYDROCORTISONE. [Concomitant]
     Active Substance: HYDROCORTISONE
  11. ATORVASTATIN [Concomitant]
     Active Substance: ATORVASTATIN
  12. VITAMIN D [Concomitant]
     Active Substance: CHOLECALCIFEROL
  13. CLOPIDOGREL [Concomitant]
     Active Substance: CLOPIDOGREL BISULFATE
  14. LISINOPRIL. [Concomitant]
     Active Substance: LISINOPRIL
  15. LEVOTHYROXINE [Concomitant]
     Active Substance: LEVOTHYROXINE
  16. CYCLOPHOSPHAMIDE. [Concomitant]
     Active Substance: CYCLOPHOSPHAMIDE
  17. DOCETAXEL. [Concomitant]
     Active Substance: DOCETAXEL
  18. FLUOXETINE [Concomitant]
     Active Substance: FLUOXETINE\FLUOXETINE HYDROCHLORIDE
  19. ALLOPURINOL. [Concomitant]
     Active Substance: ALLOPURINOL

REACTIONS (6)
  - Dyspnoea [None]
  - Chest pain [None]
  - Pain [None]
  - Bone pain [None]
  - Pain in extremity [None]
  - Neck pain [None]

NARRATIVE: CASE EVENT DATE: 20140929
